FAERS Safety Report 6572874-X (Version None)
Quarter: 2010Q1

REPORT INFORMATION
  Report Type: 
  Country: None (occurrence: None)
  Receive Date: 20100207
  Receipt Date: 20100201
  Transmission Date: 20100710
  Serious: Yes (Other)
  Sender: FDA-Public Use
  Company Number: US-ELI_LILLY_AND_COMPANY-US201002000565

PATIENT
  Sex: Female

DRUGS (2)
  1. HUMALOG [Suspect]
     Dosage: 26 U, UNK
  2. LANTUS [Concomitant]
     Indication: TYPE 1 DIABETES MELLITUS
     Dosage: 26 U, EACH EVENING
     Route: 058

REACTIONS (4)
  - DYSPNOEA [None]
  - HYPOGLYCAEMIC UNCONSCIOUSNESS [None]
  - SHOCK HYPOGLYCAEMIC [None]
  - WRONG DRUG ADMINISTERED [None]
